FAERS Safety Report 23279407 (Version 2)
Quarter: 2023Q4

REPORT INFORMATION
  Report Type: Spontaneous
  Country: DE (occurrence: DE)
  Receive Date: 20231209
  Receipt Date: 20231210
  Transmission Date: 20240109
  Serious: Yes (Hospitalization, Other)
  Sender: FDA-Public Use
  Company Number: DE-SA-2017SA246997

PATIENT
  Age: 5 Year
  Sex: Male
  Weight: 21 kg

DRUGS (9)
  1. IBUPROFEN [Suspect]
     Active Substance: IBUPROFEN
     Indication: Still^s disease
     Dosage: DOSE DESCRIPTION : 200 MG
     Route: 048
     Dates: start: 20161110
  2. NAPROXEN [Suspect]
     Active Substance: NAPROXEN
     Indication: Still^s disease
     Dosage: DOSE DESCRIPTION : 250 MG,UNK
     Route: 048
     Dates: start: 20161110
  3. METHOTREXATE [Suspect]
     Active Substance: METHOTREXATE
     Indication: Still^s disease
     Dosage: DOSE DESCRIPTION : 10 MG,QW
     Route: 058
     Dates: start: 20150512, end: 20151106
  4. TOCILIZUMAB [Suspect]
     Active Substance: TOCILIZUMAB
     Indication: Still^s disease
     Dosage: DOSE DESCRIPTION : 200 MG, QOW
     Route: 042
     Dates: start: 20151030, end: 20160114
  5. PREDNISONE [Concomitant]
     Active Substance: PREDNISONE
     Indication: Juvenile idiopathic arthritis
     Dosage: DOSE DESCRIPTION : 1.25 MG,UNK
     Route: 048
  6. PREDNISONE [Concomitant]
     Active Substance: PREDNISONE
     Dosage: DOSE DESCRIPTION : 10 MG,QD
     Route: 048
     Dates: start: 20160125
  7. PREDNISONE [Concomitant]
     Active Substance: PREDNISONE
     Dosage: DOSE DESCRIPTION : 2.5 MG, QOW
     Route: 048
     Dates: start: 20151030
  8. INDOMETHACIN [Concomitant]
     Active Substance: INDOMETHACIN
     Indication: Still^s disease
     Dosage: DOSE DESCRIPTION : 200 MG,UNK
     Route: 048
  9. INDOMETHACIN [Concomitant]
     Active Substance: INDOMETHACIN
     Dosage: DOSE DESCRIPTION : 15 MG,QD
     Route: 048
     Dates: start: 20120703

REACTIONS (5)
  - Pleural effusion [Recovering/Resolving]
  - Pneumonia [Not Recovered/Not Resolved]
  - Pneumonia [Recovered/Resolved]
  - Intracranial pressure increased [Recovered/Resolved]
  - Headache [Recovered/Resolved]

NARRATIVE: CASE EVENT DATE: 20170515
